FAERS Safety Report 18178713 (Version 1)
Quarter: 2020Q3

REPORT INFORMATION
  Report Type: Spontaneous
  Country: US (occurrence: US)
  Receive Date: 20200820
  Receipt Date: 20200820
  Transmission Date: 20201103
  Serious: No
  Sender: FDA-Public Use
  Company Number: US-JNJFOC-20200817126

PATIENT
  Age: 83 Year
  Sex: Female

DRUGS (1)
  1. DURAGESIC [Suspect]
     Active Substance: FENTANYL
     Indication: NEURALGIA
     Route: 062

REACTIONS (9)
  - Malaise [Not Recovered/Not Resolved]
  - Emotional distress [Not Recovered/Not Resolved]
  - Peripheral swelling [Not Recovered/Not Resolved]
  - Fall [Recovering/Resolving]
  - Wrong technique in product usage process [Unknown]
  - Joint injury [Recovering/Resolving]
  - Hypoaesthesia [Recovered/Resolved]
  - Pain in extremity [Not Recovered/Not Resolved]
  - Product dose omission issue [Unknown]

NARRATIVE: CASE EVENT DATE: 20200808
